FAERS Safety Report 7349953-2 (Version None)
Quarter: 2011Q1

REPORT INFORMATION
  Report Type: 
  Country: None (occurrence: None)
  Receive Date: 20110314
  Receipt Date: 20110308
  Transmission Date: 20110831
  Serious: Yes (Other)
  Sender: FDA-Public Use
  Company Number: CA-ROCHE-764134

PATIENT
  Age: 20 Year
  Sex: Female
  Weight: 55 kg

DRUGS (2)
  1. LARIAM [Suspect]
     Dosage: DURATION: 23 DAYS
     Route: 065
  2. ADVIL [Concomitant]

REACTIONS (3)
  - VERTIGO [None]
  - DIARRHOEA [None]
  - GAIT DISTURBANCE [None]
